FAERS Safety Report 9478254 (Version 1)
Quarter: 2013Q3

REPORT INFORMATION
  Report Type: Report from Study
  Country: LB (occurrence: LB)
  Receive Date: 20130827
  Receipt Date: 20130827
  Transmission Date: 20140515
  Serious: Yes (Death)
  Sender: FDA-Public Use
  Company Number: LB-SANOFI-AVENTIS-2013SA084044

PATIENT
  Age: 36 Year
  Sex: Female

DRUGS (8)
  1. LANTUS SOLOSTAR [Suspect]
     Indication: PRODUCT USED FOR UNKNOWN INDICATION
     Dosage: DOSE: 10-20 U
     Route: 058
     Dates: start: 201112
  2. SOLOSTAR [Concomitant]
     Dates: start: 201112
  3. GLUCOVANCE [Concomitant]
     Indication: DIABETES MELLITUS
     Route: 048
  4. ACTOS [Concomitant]
     Indication: DIABETES MELLITUS
     Route: 048
  5. LASIX [Concomitant]
     Route: 048
  6. LIORESAL [Concomitant]
     Route: 048
  7. LIPANTHYL [Concomitant]
     Route: 048
  8. CIPRALEX [Concomitant]
     Route: 048

REACTIONS (1)
  - Death [Fatal]
